FAERS Safety Report 14722585 (Version 2)
Quarter: 2018Q3

REPORT INFORMATION
  Report Type: Spontaneous
  Country: IT (occurrence: IT)
  Receive Date: 20180405
  Receipt Date: 20180702
  Transmission Date: 20181010
  Serious: Yes (Other)
  Sender: FDA-Public Use
  Company Number: IT-TEVA-2018-IT-876290

PATIENT
  Age: 2 Year
  Sex: Female
  Weight: 14 kg

DRUGS (3)
  1. BRONCOVALEAS [Concomitant]
     Active Substance: ALBUTEROL
     Route: 055
  2. AMOXICILLIN. [Suspect]
     Active Substance: AMOXICILLIN
     Indication: OTITIS MEDIA
     Dosage: 15 ML DAILY;
     Route: 048
     Dates: start: 20180107, end: 20180112
  3. CLENIL [Concomitant]
     Active Substance: BECLOMETHASONE DIPROPIONATE
     Route: 055

REACTIONS (1)
  - Erythema [Recovering/Resolving]

NARRATIVE: CASE EVENT DATE: 20180112
